FAERS Safety Report 9551289 (Version 4)
Quarter: 2015Q1

REPORT INFORMATION
  Report Type: Report from Study
  Country: CO (occurrence: CO)
  Receive Date: 20130925
  Receipt Date: 20150213
  Transmission Date: 20150721
  Serious: Yes (Other)
  Sender: FDA-Public Use
  Company Number: CO-ROCHE-1279670

PATIENT
  Age: 63 Year
  Sex: Female
  Weight: 65 kg

DRUGS (7)
  1. LUCENTIS [Suspect]
     Active Substance: RANIBIZUMAB
     Indication: HEADACHE
     Route: 050
     Dates: start: 2013
  2. LUCENTIS [Suspect]
     Active Substance: RANIBIZUMAB
     Indication: VISION BLURRED
  3. METFORMIN [Concomitant]
     Active Substance: METFORMIN HYDROCHLORIDE
     Route: 065
  4. VALSARTAN. [Concomitant]
     Active Substance: VALSARTAN
     Indication: HYPERTENSION
     Route: 048
  5. LUCENTIS [Suspect]
     Active Substance: RANIBIZUMAB
     Indication: MACULAR DEGENERATION
  6. INSULIN [Concomitant]
     Active Substance: INSULIN NOS
     Route: 065
  7. ACETYLSALICYLIC ACID [Concomitant]
     Active Substance: ASPIRIN
     Route: 060

REACTIONS (15)
  - Eye haemorrhage [Recovering/Resolving]
  - Fall [Unknown]
  - Back pain [Recovered/Resolved]
  - Intervertebral disc protrusion [Unknown]
  - Myalgia [Unknown]
  - Head injury [Unknown]
  - Injury [Unknown]
  - Vision blurred [Recovered/Resolved]
  - Off label use [Unknown]
  - Periorbital contusion [Unknown]
  - Eye pain [Recovered/Resolved]
  - Arthralgia [Unknown]
  - Thrombophlebitis [Recovered/Resolved]
  - Pyrexia [Recovered/Resolved]
  - Headache [Recovered/Resolved]

NARRATIVE: CASE EVENT DATE: 20130809
